FAERS Safety Report 8567814-8 (Version None)
Quarter: 2012Q3

REPORT INFORMATION
  Report Type: 
  Country: None (occurrence: None)
  Receive Date: 20120803
  Receipt Date: 20120731
  Transmission Date: 20120928
  Serious: Yes (Other)
  Sender: FDA-Public Use
  Company Number: US-PFIZER INC-2012121340

PATIENT
  Sex: Female

DRUGS (13)
  1. LIPITOR [Suspect]
     Indication: HYPERCHOLESTEROLAEMIA
     Dosage: 10 MG, DAILY
     Route: 048
     Dates: start: 20030430
  2. ISOSORBIDE [Concomitant]
  3. PLAVIX [Concomitant]
  4. PROCARDIA XL [Concomitant]
  5. TYLENOL (CAPLET) [Concomitant]
  6. SYNTHROID [Concomitant]
  7. ATENOLOL [Concomitant]
  8. PROCARDIA XL [Suspect]
     Dosage: UNK
  9. ASPIRIN [Concomitant]
  10. CLONIDINE [Concomitant]
  11. VITAMIN B-12 [Concomitant]
  12. POTASSIUM CHLORIDE [Concomitant]
  13. RESTORIL [Concomitant]

REACTIONS (1)
  - HYPOACUSIS [None]
